FAERS Safety Report 14688802 (Version 4)
Quarter: 2022Q4

REPORT INFORMATION
  Report Type: Report from Study
  Country: MX (occurrence: MX)
  Receive Date: 20180328
  Receipt Date: 20221128
  Transmission Date: 20230112
  Serious: Yes (Other)
  Sender: FDA-Public Use
  Company Number: PHHY2017MX130132

PATIENT
  Sex: Female
  Weight: 57 kg

DRUGS (4)
  1. HYDROCHLOROTHIAZIDE\VALSARTAN [Suspect]
     Active Substance: HYDROCHLOROTHIAZIDE\VALSARTAN
     Indication: Hypertension
     Dosage: 1 DF, QD (160/12.5 MG) AT BREAKFAST
     Route: 048
     Dates: start: 1990
  2. HYDROCHLOROTHIAZIDE\VALSARTAN [Suspect]
     Active Substance: HYDROCHLOROTHIAZIDE\VALSARTAN
     Dosage: 1 DF, QD (160 MG), STARTED 10 YEARS AGO
     Route: 048
  3. HYDROCHLOROTHIAZIDE\VALSARTAN [Suspect]
     Active Substance: HYDROCHLOROTHIAZIDE\VALSARTAN
     Dosage: 1 DF, QD (80/12.5MG), STARTED 3 YEARS SGO
     Route: 048
  4. HYDROCHLOROTHIAZIDE\VALSARTAN [Suspect]
     Active Substance: HYDROCHLOROTHIAZIDE\VALSARTAN
     Dosage: 1 DF, QD (80/12.5MG), IN THE MORNING AND AT MID DAY
     Route: 048

REACTIONS (18)
  - Gastric ulcer [Not Recovered/Not Resolved]
  - Diabetes mellitus [Unknown]
  - Intervertebral disc protrusion [Not Recovered/Not Resolved]
  - Spinal pain [Not Recovered/Not Resolved]
  - Intervertebral disc degeneration [Not Recovered/Not Resolved]
  - Blood pressure increased [Recovered/Resolved]
  - Blood pressure increased [Unknown]
  - Spinal column injury [Not Recovered/Not Resolved]
  - Insomnia [Not Recovered/Not Resolved]
  - Abdominal pain upper [Not Recovered/Not Resolved]
  - Nausea [Not Recovered/Not Resolved]
  - Pain in extremity [Not Recovered/Not Resolved]
  - Depression [Unknown]
  - Malaise [Unknown]
  - Visual impairment [Unknown]
  - Gait disturbance [Unknown]
  - Off label use [Unknown]
  - Product dose omission issue [Unknown]

NARRATIVE: CASE EVENT DATE: 20160101
